FAERS Safety Report 8179620-7 (Version None)
Quarter: 2012Q1

REPORT INFORMATION
  Report Type: 
  Country: None (occurrence: None)
  Receive Date: 20120229
  Receipt Date: 20120229
  Transmission Date: 20120608
  Serious: Yes (Life-Threatening, Hospitalization)
  Sender: FDA-Public Use
  Company Number: None

PATIENT
  Sex: Male
  Weight: 61.4 kg

DRUGS (4)
  1. HALOPERIDOL DECANOATE [Suspect]
     Indication: SCHIZOPHRENIA
     Dosage: HALOPERIDOL DECANOATE 100 MG Q WEEK IM
     Route: 030
     Dates: start: 20111103
  2. DIPHENHYDRAMINE HCL [Concomitant]
  3. HALOPERIDOL LACTATE [Suspect]
     Indication: SCHIZOPHRENIA
     Dosage: HALOPERIDOL LACTATE 5-10 MG QID PRN IM
     Route: 030
     Dates: start: 20111103, end: 20111116
  4. LORAZEPAM [Concomitant]

REACTIONS (3)
  - NEUROLEPTIC MALIGNANT SYNDROME [None]
  - HEART RATE INCREASED [None]
  - BLOOD PRESSURE INCREASED [None]
